FAERS Safety Report 8883530 (Version 1)
Quarter: 2012Q4

REPORT INFORMATION
  Report Type: 
  Country: US (occurrence: US)
  Receive Date: 20121102
  Receipt Date: 20121102
  Transmission Date: 20130627
  Serious: No
  Sender: FDA-Public Use
  Company Number: US-ASTRAZENECA-2012SE03498

PATIENT
  Age: 42 Year
  Sex: Male

DRUGS (6)
  1. CRESTOR [Suspect]
     Indication: HYPERLIPIDAEMIA
     Route: 048
  2. ACTOS [Concomitant]
     Indication: DIABETES MELLITUS
  3. ALBUTEROL SULFATE [Concomitant]
     Indication: BRONCHOPNEUMONIA
  4. ASPIRIN [Concomitant]
  5. PROVIGIL [Concomitant]
     Indication: SLEEP DISORDER DUE TO GENERAL MEDICAL CONDITION, HYPERSOMNIA TYPE
  6. VITAMIN D [Concomitant]
     Indication: HYPOVITAMINOSIS

REACTIONS (9)
  - Umbilical hernia [Unknown]
  - Wheezing [Unknown]
  - Migraine [Unknown]
  - Gastrooesophageal reflux disease [Unknown]
  - Oedema [Unknown]
  - Chest pain [Unknown]
  - Dyspnoea [Unknown]
  - Pain in extremity [Unknown]
  - Arthralgia [Unknown]
